FAERS Safety Report 20223454 (Version 2)
Quarter: 2022Q1

REPORT INFORMATION
  Report Type: Report from Study
  Country: MX (occurrence: MX)
  Receive Date: 20211223
  Receipt Date: 20220105
  Transmission Date: 20220423
  Serious: Yes (Other)
  Sender: FDA-Public Use
  Company Number: MX-NOVARTISPH-NVSC2021MX292441

PATIENT
  Age: 55 Year
  Sex: Female
  Weight: 70 kg

DRUGS (6)
  1. KISQALI [Suspect]
     Active Substance: RIBOCICLIB
     Indication: Hepatic cancer
     Dosage: 3 DF (300 MG), 21 CONSECUTIVE DAYS FOLLOWED BY 7 DAYS OFF
     Route: 048
     Dates: start: 20211117
  2. KISQALI [Suspect]
     Active Substance: RIBOCICLIB
     Indication: Breast cancer
     Dosage: 3 DF/1 DF (200MG), TID
     Route: 048
     Dates: start: 20211117
  3. FEMARA [Suspect]
     Active Substance: LETROZOLE
     Indication: Breast cancer
     Dosage: 2.5 MG
     Route: 065
  4. FEMARA [Suspect]
     Active Substance: LETROZOLE
     Dosage: 1 DF (2.5 MG), QD
     Route: 048
     Dates: start: 20211015
  5. FEMARA [Suspect]
     Active Substance: LETROZOLE
     Dosage: 1 DF (2.5 MG), QD
     Route: 048
     Dates: start: 202110
  6. FEMARA [Suspect]
     Active Substance: LETROZOLE
     Dosage: 1 DF (2.5 MG), QD
     Route: 048
     Dates: start: 202111

REACTIONS (9)
  - Cellulitis [Not Recovered/Not Resolved]
  - Weight increased [Not Recovered/Not Resolved]
  - Dysgeusia [Not Recovered/Not Resolved]
  - Fatigue [Unknown]
  - COVID-19 [Not Recovered/Not Resolved]
  - Nasopharyngitis [Unknown]
  - Malaise [Unknown]
  - Inappropriate schedule of product administration [Unknown]
  - Product use in unapproved indication [Unknown]

NARRATIVE: CASE EVENT DATE: 20211001
